FAERS Safety Report 5998702-9 (Version None)
Quarter: 2008Q4

REPORT INFORMATION
  Report Type: 
  Country: None (occurrence: None)
  Receive Date: 20081213
  Receipt Date: 20080718
  Transmission Date: 20090506
  Serious: No
  Sender: FDA-Public Use
  Company Number: US-AMGEN-KDL279712

PATIENT
  Sex: Male
  Weight: 108.1 kg

DRUGS (6)
  1. ENBREL [Suspect]
     Indication: PSORIATIC ARTHROPATHY
     Route: 058
     Dates: start: 20060523
  2. TERAZOSIN HCL [Concomitant]
  3. OMEPRAZOLE [Concomitant]
  4. LISINOPRIL [Concomitant]
  5. ASPIRIN [Concomitant]
  6. VIAGRA [Concomitant]

REACTIONS (6)
  - BRONCHITIS [None]
  - CHILLS [None]
  - COUGH [None]
  - INFLUENZA LIKE ILLNESS [None]
  - PSORIATIC ARTHROPATHY [None]
  - PYREXIA [None]
